FAERS Safety Report 16736457 (Version 2)
Quarter: 2019Q4

REPORT INFORMATION
  Report Type: Report from Study
  Country: US (occurrence: US)
  Receive Date: 20190823
  Receipt Date: 20191017
  Transmission Date: 20200122
  Serious: No
  Sender: FDA-Public Use
  Company Number: US-TESAROUBC-2019-TSO02940-US

PATIENT
  Age: 76 Year
  Sex: Female

DRUGS (21)
  1. NIRAPARIB [Suspect]
     Active Substance: NIRAPARIB
     Indication: OVARIAN CANCER
     Dosage: MOST RECENT DOSE (200 MG) PRIOR TO EVENT ONSET: 04/JUN/2019 (200 MG,1 IN 1 D)
     Route: 048
     Dates: start: 20190501, end: 20190612
  2. NAPHAZOLINE [Concomitant]
     Active Substance: NAPHAZOLINE\NAPHAZOLINE HYDROCHLORIDE
     Indication: PRODUCT USED FOR UNKNOWN INDICATION
     Dosage: UNK, PRN
     Route: 047
     Dates: start: 20190515
  3. SUNSCREEN [Concomitant]
     Active Substance: HOMOSALATE\OCTINOXATE\OCTISALATE\OXYBENZONE\TITANIUM DIOXIDE
     Indication: PRODUCT USED FOR UNKNOWN INDICATION
     Dosage: UNK, PRN
     Route: 061
     Dates: start: 20190505
  4. BENADRYL OTC [Concomitant]
     Indication: RASH MACULO-PAPULAR
     Dosage: 1 UNIT NOT REPORTED, UNKNOWN
     Route: 048
     Dates: start: 20190517, end: 20190612
  5. BENADRYL OTC [Concomitant]
     Dosage: 1 UNIT NOT REPORTED,PRN
     Route: 061
     Dates: start: 20190518, end: 20190523
  6. LANTUS [Concomitant]
     Active Substance: INSULIN GLARGINE
     Indication: TYPE 2 DIABETES MELLITUS
     Dosage: 8 UNIT NOT REPORTED, 1 IN 1 D
     Route: 058
     Dates: start: 20190606
  7. ZOFRAN [Concomitant]
     Active Substance: ONDANSETRON HYDROCHLORIDE
     Indication: NAUSEA
     Dosage: 8 MG, TID
     Route: 048
     Dates: start: 20190501
  8. NYSTOP [Concomitant]
     Active Substance: NYSTATIN
     Indication: PRODUCT USED FOR UNKNOWN INDICATION
     Dosage: 100000 UNIT/GM POWDER, TID
     Route: 061
     Dates: start: 20190612, end: 20190624
  9. JANUMET [Concomitant]
     Active Substance: METFORMIN HYDROCHLORIDE\SITAGLIPTIN PHOSPHATE
     Indication: TYPE 2 DIABETES MELLITUS
     Dosage: 1000 MG, BID
     Route: 032
     Dates: start: 2009, end: 20190627
  10. BIOTIN [Concomitant]
     Active Substance: BIOTIN
     Indication: DRY MOUTH
     Dosage: UNK
     Route: 048
     Dates: start: 20190502, end: 20190709
  11. MYCOLOG-II [Concomitant]
     Active Substance: NYSTATIN\TRIAMCINOLONE ACETONIDE
     Indication: RASH MACULO-PAPULAR
     Dosage: 0.1 %, BID
     Route: 061
     Dates: start: 20190522, end: 20190528
  12. AMARYL [Concomitant]
     Active Substance: GLIMEPIRIDE
     Indication: TYPE 2 DIABETES MELLITUS
     Dosage: 2 MG, BID
     Route: 048
     Dates: start: 2009, end: 20190627
  13. VITAMIN D3 [Concomitant]
     Active Substance: CHOLECALCIFEROL
     Indication: PRODUCT USED FOR UNKNOWN INDICATION
     Dosage: 1000 UNITS NOT REPORTED, 1 IN 1 D
     Route: 048
     Dates: start: 2015
  14. ESCITALOPRAM [Concomitant]
     Active Substance: ESCITALOPRAM OXALATE
     Indication: DEPRESSION
     Dosage: UNK
     Route: 048
     Dates: start: 1999
  15. KLONOPIN [Concomitant]
     Active Substance: CLONAZEPAM
     Indication: DEPRESSION
     Dosage: 0.5 MG, 2 IN 1 D
     Route: 048
     Dates: start: 1994
  16. KLONOPIN [Concomitant]
     Active Substance: CLONAZEPAM
     Indication: PANIC DISORDER
  17. ATEZOLIZUMAB. [Suspect]
     Active Substance: ATEZOLIZUMAB
     Indication: OVARIAN CANCER
     Dosage: MOST RECENT DOSE (840 MG) PRIOR TO EVENT ONSET: 29/MAY/2019, 1 IN 2 WK
     Route: 042
     Dates: start: 20190501, end: 20190612
  18. ESCITALOPRAM [Concomitant]
     Active Substance: ESCITALOPRAM OXALATE
     Indication: PANIC DISORDER
  19. ATORVASTATIN [Concomitant]
     Active Substance: ATORVASTATIN
     Indication: HYPERLIPIDAEMIA
     Dosage: 20 MG, 1 IN 1 D
     Route: 048
     Dates: start: 2018
  20. COBIMETINIB. [Suspect]
     Active Substance: COBIMETINIB
     Indication: OVARIAN CANCER
     Dosage: MOST RECENT DOSE (60 MG) PRIOR TO EVENT ONSET: 04/JUN/2019 (60 MG,1 IN 1 D)
     Route: 048
     Dates: start: 20190501, end: 20190612
  21. IMODIUM [Concomitant]
     Active Substance: LOPERAMIDE HYDROCHLORIDE
     Indication: DIARRHOEA
     Dosage: 2 MG, PRN
     Route: 048
     Dates: start: 20190513, end: 20190513

REACTIONS (1)
  - Diarrhoea [Recovered/Resolved]

NARRATIVE: CASE EVENT DATE: 20190604
